FAERS Safety Report 5958695-7 (Version None)
Quarter: 2008Q4

REPORT INFORMATION
  Report Type: 
  Country: None (occurrence: None)
  Receive Date: 20081119
  Receipt Date: 20081113
  Transmission Date: 20090506
  Serious: Yes (Other)
  Sender: FDA-Public Use
  Company Number: US-PFIZER INC-2008096446

PATIENT
  Sex: Female
  Weight: 57.272 kg

DRUGS (5)
  1. NORVASC [Suspect]
     Indication: BLOOD PRESSURE
     Route: 048
     Dates: start: 20000101
  2. LIPITOR [Suspect]
     Indication: CARDIAC DISORDER
  3. TOPROL-XL [Suspect]
     Indication: CARDIAC DISORDER
  4. MULTI-VITAMINS [Concomitant]
  5. CALCIUM [Concomitant]

REACTIONS (2)
  - ABDOMINAL DISTENSION [None]
  - SUICIDAL IDEATION [None]
